FAERS Safety Report 8624575-1 (Version None)
Quarter: 2012Q3

REPORT INFORMATION
  Report Type: 
  Country: None (occurrence: None)
  Receive Date: 20120810
  Receipt Date: 20120727
  Transmission Date: 20120928
  Serious: Yes (Other)
  Sender: FDA-Public Use
  Company Number: 1365024

PATIENT
  Age: 63 Year
  Sex: Female
  Weight: 29.9374 kg

DRUGS (6)
  1. SIMVASTATIN [Concomitant]
  2. ONDANSETRON [Concomitant]
  3. TRAMADOL HCL [Concomitant]
  4. CYCLIZINE [Concomitant]
  5. GENTAMICIN SULFATE [Suspect]
     Indication: PROPHYLAXIS
     Dosage: 280 MG MILLIGRAM(S), INTRAVENOUS
     Route: 042
     Dates: start: 20120207, end: 20120207
  6. ACETAMINOPHEN [Concomitant]

REACTIONS (2)
  - NEPHROPATHY TOXIC [None]
  - RENAL FAILURE ACUTE [None]
